FAERS Safety Report 6226457-1 (Version None)
Quarter: 2009Q2

REPORT INFORMATION
  Report Type: 
  Country: None (occurrence: None)
  Receive Date: 20090612
  Receipt Date: 20090521
  Transmission Date: 20091009
  Serious: No
  Sender: FDA-Public Use
  Company Number: US-ABBOTT-09P-163-0573929-00

PATIENT
  Sex: Female

DRUGS (4)
  1. HUMIRA [Suspect]
     Indication: CROHN'S DISEASE
     Route: 058
     Dates: start: 20070101, end: 20090401
  2. HUMIRA [Suspect]
     Route: 058
     Dates: start: 20090501
  3. COLESTID [Concomitant]
     Indication: DIARRHOEA
  4. PROTONIX [Concomitant]
     Indication: DRUG USE FOR UNKNOWN INDICATION

REACTIONS (5)
  - ARTHRALGIA [None]
  - ARTHRITIS [None]
  - CROHN'S DISEASE [None]
  - HEPATIC STEATOSIS [None]
  - JOINT SWELLING [None]
